FAERS Safety Report 8166334-2 (Version None)
Quarter: 2012Q1

REPORT INFORMATION
  Report Type: 
  Country: None (occurrence: None)
  Receive Date: 20120227
  Receipt Date: 20110701
  Transmission Date: 20120608
  Serious: No
  Sender: FDA-Public Use
  Company Number: US-MYLANLABS-2011S1012200

PATIENT
  Age: 23 Year
  Sex: Male
  Weight: 68.04 kg

DRUGS (2)
  1. AMNESTEEM [Suspect]
     Route: 048
     Dates: end: 20110429
  2. AMNESTEEM [Suspect]
     Indication: ACNE CYSTIC
     Route: 048
     Dates: start: 20110128

REACTIONS (1)
  - HEPATIC ENZYME INCREASED [None]
